FAERS Safety Report 9347257 (Version 2)
Quarter: 2013Q3

REPORT INFORMATION
  Report Type: Report from Study
  Country: US (occurrence: US)
  Receive Date: 20130613
  Receipt Date: 20130703
  Transmission Date: 20140515
  Serious: Yes (Hospitalization)
  Sender: FDA-Public Use
  Company Number: US-ACTELION-A-US2013-84231

PATIENT
  Age: 41 Year
  Sex: Female

DRUGS (4)
  1. VELETRI [Suspect]
     Indication: PULMONARY ARTERIAL HYPERTENSION
     Dosage: 8 NG/KG, PER MIN
     Route: 042
     Dates: start: 20130221
  2. FLOLAN [Concomitant]
  3. SILDENAFIL [Concomitant]
  4. COUMADIN [Concomitant]

REACTIONS (5)
  - Pneumonia [Unknown]
  - Dry throat [Unknown]
  - Sleep disorder [Unknown]
  - Dyspnoea [Unknown]
  - Catheter placement [Unknown]
